FAERS Safety Report 6238370-4 (Version None)
Quarter: 2009Q2

REPORT INFORMATION
  Report Type: 
  Country: None (occurrence: None)
  Receive Date: 20090622
  Receipt Date: 20090615
  Transmission Date: 20091009
  Serious: Yes (Hospitalization, Other)
  Sender: FDA-Public Use
  Company Number: US-BIOGENIDEC-2009BI012168

PATIENT
  Age: 38 Year
  Sex: Female

DRUGS (8)
  1. TYSABRI [Suspect]
     Indication: MULTIPLE SCLEROSIS
     Route: 042
     Dates: start: 20050210, end: 20050216
  2. TYSABRI [Suspect]
     Route: 042
     Dates: start: 20070830, end: 20090501
  3. TYSABRI [Suspect]
     Route: 042
     Dates: start: 20090601
  4. PROVIGIL [Concomitant]
  5. LEXAPRO [Concomitant]
  6. GABAPENTIN [Concomitant]
  7. AMBIEN [Concomitant]
  8. OMEPRIZOLE [Concomitant]

REACTIONS (1)
  - THYROID MASS [None]
